FAERS Safety Report 12321781 (Version 1)
Quarter: 2016Q2

REPORT INFORMATION
  Report Type: Spontaneous
  Country: US (occurrence: None)
  Receive Date: 20160429
  Receipt Date: 20160429
  Transmission Date: 20160815
  Serious: Yes (Disabling)
  Sender: FDA-Public Use
  Company Number: None

PATIENT
  Age: 94 Year
  Sex: Male
  Weight: 77.11 kg

DRUGS (1)
  1. TROSPIUM XR 50MG/ TOOK ONE A DA Y FOR 24 DAYS PRIOR TO 4-2-16 [Suspect]
     Active Substance: TROSPIUM
     Indication: URGE INCONTINENCE
     Route: 048
     Dates: start: 20160308, end: 20160402

REACTIONS (1)
  - Constipation [None]

NARRATIVE: CASE EVENT DATE: 20160402
